FAERS Safety Report 6007204-5 (Version None)
Quarter: 2008Q4

REPORT INFORMATION
  Report Type: 
  Country: None (occurrence: None)
  Receive Date: 20081217
  Receipt Date: 20080218
  Transmission Date: 20090506
  Serious: No
  Sender: FDA-Public Use
  Company Number: US-ASTRAZENECA-2008UW03316

PATIENT
  Age: 74 Year
  Sex: Female

DRUGS (10)
  1. CRESTOR [Suspect]
     Route: 048
     Dates: start: 20080214
  2. FORTEO [Concomitant]
  3. LISINOPRIL [Concomitant]
  4. PRILOSEC [Concomitant]
  5. EVISTA [Concomitant]
  6. RUTIN [Concomitant]
  7. BEANO [Concomitant]
  8. VITAMINS [Concomitant]
  9. SELENIUM [Concomitant]
  10. RED CLOVER BLOSSOM [Concomitant]

REACTIONS (2)
  - HEART RATE INCREASED [None]
  - INSOMNIA [None]
